FAERS Safety Report 8397779-3 (Version None)
Quarter: 2012Q1

REPORT INFORMATION
  Report Type: 
  Country: None (occurrence: None)
  Receive Date: 20120323
  Receipt Date: 20110111
  Transmission Date: 20120608
  Serious: Yes (Hospitalization)
  Sender: FDA-Public Use
  Company Number: 163-21880-11010901

PATIENT
  Age: 59 Year
  Sex: Female

DRUGS (14)
  1. REVLIMID [Suspect]
     Indication: MULTIPLE MYELOMA
     Dosage: 25 MG, PO
     Route: 048
     Dates: start: 20101218, end: 20110104
  2. KLONOPIN [Concomitant]
  3. BACTRIM [Concomitant]
  4. RITUXAN [Concomitant]
  5. MEGACE [Concomitant]
  6. PERCOCET [Concomitant]
  7. ZOMETA [Concomitant]
  8. NEXIUM [Concomitant]
  9. DECADRON [Concomitant]
  10. DIFLUCAN [Concomitant]
  11. VELCADE [Concomitant]
  12. TAMBOCOR [Concomitant]
  13. TOPROL-XL [Concomitant]
  14. NORVASC [Concomitant]

REACTIONS (1)
  - ESCHERICHIA INFECTION [None]
